FAERS Safety Report 8370865-X (Version None)
Quarter: 2012Q2

REPORT INFORMATION
  Report Type: 
  Country: None (occurrence: None)
  Receive Date: 20120518
  Receipt Date: 20120313
  Transmission Date: 20120825
  Serious: No
  Sender: FDA-Public Use
  Company Number: US-ASTRAZENECA-2012SE18003

PATIENT
  Sex: Male

DRUGS (2)
  1. NOT SPECIFIED [Concomitant]
  2. PRILOSEC OTC [Suspect]
     Indication: DYSPEPSIA
     Dosage: 1 TABLET, 1 ONLY
     Route: 048
     Dates: start: 20120312, end: 20120312

REACTIONS (4)
  - CONDITION AGGRAVATED [None]
  - CHEST DISCOMFORT [None]
  - DYSPEPSIA [None]
  - DRUG ADMINISTRATION ERROR [None]
